FAERS Safety Report 10337585 (Version 2)
Quarter: 2014Q3

REPORT INFORMATION
  Report Type: Spontaneous
  Country: IT (occurrence: IT)
  Receive Date: 20140724
  Receipt Date: 20140729
  Transmission Date: 20150326
  Serious: Yes (Other)
  Sender: FDA-Public Use
  Company Number: IT-ROCHE-1438858

PATIENT
  Age: 67 Year
  Sex: Male

DRUGS (5)
  1. DELTACORTENE [Concomitant]
     Active Substance: PREDNISONE
     Route: 048
  2. MABTHERA [Suspect]
     Active Substance: RITUXIMAB
     Route: 042
  3. URBASON [Concomitant]
     Active Substance: METHYLPREDNISOLONE
     Route: 048
  4. MABTHERA [Suspect]
     Active Substance: RITUXIMAB
     Indication: CRYOGLOBULINAEMIA
     Route: 042
     Dates: start: 20140102, end: 20140117
  5. ASPIRINETTA [Concomitant]
     Active Substance: ASPIRIN
     Route: 048
     Dates: start: 20140102, end: 20140120

REACTIONS (1)
  - Intestinal haemorrhage [Unknown]

NARRATIVE: CASE EVENT DATE: 20140120
